FAERS Safety Report 24768877 (Version 1)
Quarter: 2024Q4

REPORT INFORMATION
  Report Type: Spontaneous
  Country: FR (occurrence: FR)
  Receive Date: 20241224
  Receipt Date: 20241224
  Transmission Date: 20250114
  Serious: Yes (Hospitalization)
  Sender: ROCHE
  Company Number: None

PATIENT
  Age: 79 Year
  Sex: Female
  Weight: 58 kg

DRUGS (16)
  1. ALECENSA [Suspect]
     Active Substance: ALECTINIB HYDROCHLORIDE
     Indication: Lung adenocarcinoma
     Route: 048
     Dates: start: 20230813, end: 20230913
  2. ALECENSA [Suspect]
     Active Substance: ALECTINIB HYDROCHLORIDE
     Route: 048
     Dates: start: 20230914, end: 20231103
  3. ALECENSA [Suspect]
     Active Substance: ALECTINIB HYDROCHLORIDE
     Route: 048
     Dates: start: 20231104
  4. TENORMINE 50 mg comprim pellicul scable [Concomitant]
     Indication: Hypertension
     Route: 048
  5. AXELER 20 mg5 mg comprim pellicul [Concomitant]
     Indication: Hypertension
     Dosage: 1-0-0
     Route: 048
  6. TAHOR 40 mg comprim pellicul [Concomitant]
     Indication: Cardiovascular event prophylaxis
     Dosage: 0-0-1
     Route: 048
  7. AERIUS 5 mg comprim pellicul [Concomitant]
     Indication: Hypersensitivity
     Dosage: 1-0-1
     Route: 048
  8. OROCAL VITAMINE D3 500 mg1000 UI comprim  croquer [Concomitant]
     Indication: Mineral supplementation
     Dosage: 0-1/2-0
     Route: 048
  9. PREVISCAN 20 mg comprim scable [Concomitant]
     Indication: Atrial fibrillation
     Dosage: 0-0-3/4
     Route: 048
  10. ZYMAD 50 000 UI solution buvable en ampoule [Concomitant]
     Indication: Vitamin supplementation
     Route: 048
  11. FOSAVANCE comprim [Concomitant]
     Indication: Osteoporosis
     Route: 048
  12. ULTIBRO BREEZHALER 85 microgrammes43 microgrammes [Concomitant]
     Indication: Lung adenocarcinoma
     Route: 065
  13. LYSANXIA 10 mg comprim [Concomitant]
     Indication: Anxiety
     Dosage: 0-0-1/4
     Route: 048
  14. TRANSIPEG [Concomitant]
     Indication: Constipation
     Route: 048
  15. VOGALENE [Concomitant]
     Active Substance: METOPIMAZINE
     Indication: Prophylaxis of nausea and vomiting
     Route: 048
  16. DAFALGAN [Concomitant]
     Active Substance: ACETAMINOPHEN
     Indication: Pain
     Route: 048

REACTIONS (8)
  - Decreased appetite [Recovered/Resolved]
  - Anaemia [Not Recovered/Not Resolved]
  - Dysgeusia [Not Recovered/Not Resolved]
  - Rash [Recovered/Resolved]
  - Palpitations [Not Recovered/Not Resolved]
  - Dizziness [Not Recovered/Not Resolved]
  - Dry skin [Not Recovered/Not Resolved]
  - Cardiac failure [Recovered/Resolved]

NARRATIVE: CASE EVENT DATE: 20230821
